FAERS Safety Report 13277868 (Version 1)
Quarter: 2017Q1

REPORT INFORMATION
  Report Type: Spontaneous
  Country: BR (occurrence: BR)
  Receive Date: 20170228
  Receipt Date: 20170228
  Transmission Date: 20170428
  Serious: Yes (Other)
  Sender: FDA-Public Use
  Company Number: BR-JNJFOC-20170224413

PATIENT
  Age: 55 Year
  Sex: Female

DRUGS (1)
  1. ORTHO EVRA [Suspect]
     Active Substance: ETHINYL ESTRADIOL\NORELGESTROMIN
     Indication: HORMONE REPLACEMENT THERAPY
     Route: 065
     Dates: start: 201701

REACTIONS (7)
  - Leukaemia [Unknown]
  - Arrhythmia [Unknown]
  - Product use issue [Unknown]
  - Pyrexia [Unknown]
  - Nail bed bleeding [Unknown]
  - Malaise [Unknown]
  - Feeling hot [Unknown]

NARRATIVE: CASE EVENT DATE: 2017
